FAERS Safety Report 5110530-5 (Version None)
Quarter: 2006Q3

REPORT INFORMATION
  Report Type: 
  Country: None (occurrence: None)
  Receive Date: 20060913
  Receipt Date: 20060901
  Transmission Date: 20061208
  Serious: No
  Sender: FDA-Public Use
  Company Number: 060901-0000791

PATIENT
  Age: 45 Year
  Sex: Female

DRUGS (7)
  1. PANHEMATIN [Suspect]
     Indication: PORPHYRIA
     Dosage: PRN; IV
     Route: 042
     Dates: start: 20060818, end: 20060818
  2. MORPHINE [Concomitant]
  3. PROZAC [Concomitant]
  4. PRILOSEC [Concomitant]
  5. COMPAZINE [Concomitant]
  6. IRON [Concomitant]
  7. LORAZEPAM [Concomitant]

REACTIONS (6)
  - ANXIETY [None]
  - BODY TEMPERATURE DECREASED [None]
  - DIARRHOEA [None]
  - FORMICATION [None]
  - NAUSEA [None]
  - VOMITING [None]
